FAERS Safety Report 7774792-8 (Version None)
Quarter: 2011Q3

REPORT INFORMATION
  Report Type: 
  Country: None (occurrence: None)
  Receive Date: 20110923
  Receipt Date: 20110913
  Transmission Date: 20111222
  Serious: Yes (Other)
  Sender: FDA-Public Use
  Company Number: GB-PFIZER INC-2011225955

PATIENT
  Sex: Female

DRUGS (1)
  1. NICORETTE [Suspect]
     Dosage: ONE CARTRIDGE DAILY
     Route: 055
     Dates: start: 20110912

REACTIONS (3)
  - THROAT IRRITATION [None]
  - MULTIPLE SCLEROSIS [None]
  - DEPRESSED MOOD [None]
